FAERS Safety Report 12771845 (Version 1)
Quarter: 2016Q3

REPORT INFORMATION
  Report Type: Spontaneous
  Country: BR (occurrence: BR)
  Receive Date: 20160922
  Receipt Date: 20160922
  Transmission Date: 20161109
  Serious: Yes (Other)
  Sender: FDA-Public Use
  Company Number: BR-ASTRAZENECA-2016SE99890

PATIENT
  Sex: Female

DRUGS (1)
  1. ONGLYZA [Suspect]
     Active Substance: SAXAGLIPTIN HYDROCHLORIDE
     Indication: DIABETES MELLITUS MANAGEMENT
     Route: 048

REACTIONS (1)
  - Pancreatic neoplasm [Not Recovered/Not Resolved]

NARRATIVE: CASE EVENT DATE: 2016
